FAERS Safety Report 26048892 (Version 1)
Quarter: 2025Q4

REPORT INFORMATION
  Report Type: Spontaneous
  Country: US (occurrence: US)
  Receive Date: 20251115
  Receipt Date: 20251115
  Transmission Date: 20260118
  Serious: Yes (Other)
  Sender: AMNEAL
  Company Number: US-AMNEAL PHARMACEUTICALS-2025-AMRX-04275

PATIENT
  Age: 4 Year
  Sex: Female

DRUGS (8)
  1. FLUDROCORTISONE ACETATE [Suspect]
     Active Substance: FLUDROCORTISONE ACETATE
     Indication: Adrenogenital syndrome
     Dosage: 100 MICROGRAM, DAILY
     Route: 048
  2. FLUDROCORTISONE ACETATE [Suspect]
     Active Substance: FLUDROCORTISONE ACETATE
     Dosage: 50 MCG IN MORNING
     Route: 048
     Dates: start: 202411
  3. FLUDROCORTISONE ACETATE [Suspect]
     Active Substance: FLUDROCORTISONE ACETATE
     Dosage: 100 MCG ON MONDAY, WEDNESDAY AND FRIDAY ONLY
     Route: 048
  4. HYDROCORTISONE [Suspect]
     Active Substance: HYDROCORTISONE
     Indication: Adrenogenital syndrome
     Dosage: 3.75 MG IN MORNING, 2.5 MG IN THE AFTERNOON
     Route: 048
     Dates: start: 20250423
  5. HYDROCORTISONE [Suspect]
     Active Substance: HYDROCORTISONE
     Dosage: 3.75 MG IN MORNING, 2.5 MG IN THE AFTERNOON, AND 1.25 MG AT NIGHT (10.1MG/M2/DAY)
     Route: 048
     Dates: start: 20250605, end: 20250722
  6. HYDROCORTISONE [Suspect]
     Active Substance: HYDROCORTISONE
     Dosage: 3.75 MG IN MORNING, 2.5 MG IN THE AFTERNOON, AND 2.5 MG AT NIGHT
     Route: 048
     Dates: start: 20250722
  7. CRENESSITY [Suspect]
     Active Substance: CRINECERFONT
     Indication: Adrenogenital syndrome
     Dosage: 0.5 MILLILITER, 2X/DAY, WITH FOOD
     Route: 048
     Dates: start: 202503
  8. SOLU-CORTEF [Concomitant]
     Active Substance: HYDROCORTISONE SODIUM SUCCINATE
     Indication: Product used for unknown indication
     Dosage: AS NEEDED
     Route: 065

REACTIONS (8)
  - Adrenal insufficiency [Recovered/Resolved]
  - Renin increased [Recovered/Resolved]
  - 17-hydroxyprogesterone increased [Recovering/Resolving]
  - Blood androstenedione increased [Recovered/Resolved]
  - Decreased appetite [Recovered/Resolved]
  - Weight decreased [Recovered/Resolved]
  - Abdominal pain [Recovered/Resolved]
  - Hypertension [Recovered/Resolved]

NARRATIVE: CASE EVENT DATE: 20230701
